FAERS Safety Report 7048854-7 (Version None)
Quarter: 2010Q4

REPORT INFORMATION
  Report Type: 
  Country: None (occurrence: None)
  Receive Date: 20101018
  Receipt Date: 20101008
  Transmission Date: 20110411
  Serious: Yes (Other)
  Sender: FDA-Public Use
  Company Number: US-US-EMD SERONO, INC.-7021457

PATIENT
  Sex: Female

DRUGS (3)
  1. REBIF [Suspect]
     Indication: MULTIPLE SCLEROSIS
     Route: 058
     Dates: start: 20091028
  2. CYMBALTA [Concomitant]
     Indication: DEPRESSION
  3. UNSPECIFIED MEDICATION [Concomitant]
     Indication: ANXIETY

REACTIONS (5)
  - BRAIN MASS [None]
  - COGNITIVE DISORDER [None]
  - DEPRESSION [None]
  - INJECTION SITE ERYTHEMA [None]
  - INJECTION SITE PAIN [None]
